FAERS Safety Report 11718603 (Version 1)
Quarter: 2015Q4

REPORT INFORMATION
  Report Type: Spontaneous
  Country: IT (occurrence: IT)
  Receive Date: 20151110
  Receipt Date: 20151110
  Transmission Date: 20160304
  Serious: Yes (Other)
  Sender: FDA-Public Use
  Company Number: IT-ACTAVIS-2015-23926

PATIENT
  Age: 62 Year
  Sex: Male
  Weight: 100 kg

DRUGS (2)
  1. OXALIPLATIN. [Suspect]
     Active Substance: OXALIPLATIN
     Indication: ADENOCARCINOMA OF COLON
     Dosage: 170 MG/KG, CYCLICAL
     Route: 042
     Dates: start: 20151019, end: 20151019
  2. AVASTIN [Suspect]
     Active Substance: BEVACIZUMAB
     Indication: ADENOCARCINOMA OF COLON
     Dosage: 500 MG/KG, CYCLICAL
     Route: 042
     Dates: start: 20151019, end: 20151019

REACTIONS (2)
  - Vomiting [Recovered/Resolved]
  - Hypertensive crisis [Recovered/Resolved]

NARRATIVE: CASE EVENT DATE: 20151019
